FAERS Safety Report 7598939-1 (Version None)
Quarter: 2011Q3

REPORT INFORMATION
  Report Type: 
  Country: None (occurrence: None)
  Receive Date: 20110711
  Receipt Date: 20110630
  Transmission Date: 20111222
  Serious: No
  Sender: FDA-Public Use
  Company Number: US-BIOGENIDEC-2011BI024425

PATIENT
  Sex: Female

DRUGS (1)
  1. TYSABRI [Suspect]
     Indication: MULTIPLE SCLEROSIS
     Route: 042

REACTIONS (5)
  - PAIN IN EXTREMITY [None]
  - DEPRESSION [None]
  - FEELING ABNORMAL [None]
  - ABASIA [None]
  - PROGRESSIVE RELAPSING MULTIPLE SCLEROSIS [None]
